FAERS Safety Report 25920607 (Version 1)
Quarter: 2025Q4

REPORT INFORMATION
  Report Type: Spontaneous
  Country: US (occurrence: US)
  Receive Date: 20251014
  Receipt Date: 20251014
  Transmission Date: 20260118
  Serious: No
  Sender: FENNEC PHARMACEUTICALS
  Company Number: US-FENNEC PHARMACEUTICALS, INC.-2025FEN00085

PATIENT
  Sex: Male

DRUGS (2)
  1. PEDMARK [Suspect]
     Active Substance: SODIUM THIOSULFATE
     Dosage: CYCLE #1 37.5 GRAMS (20 MG/M2) IV OVER 30-45 MINUTES
     Route: 042
     Dates: start: 20250820, end: 20250820
  2. CISPLATIN [Suspect]
     Active Substance: CISPLATIN

REACTIONS (3)
  - Blood pressure increased [Unknown]
  - Full blood count decreased [Unknown]
  - Off label use [Unknown]

NARRATIVE: CASE EVENT DATE: 20250101
